FAERS Safety Report 4645118-3 (Version None)
Quarter: 2005Q2

REPORT INFORMATION
  Report Type: 
  Country: None (occurrence: None)
  Receive Date: 20050422
  Receipt Date: 20050407
  Transmission Date: 20051028
  Serious: Yes (Hospitalization)
  Sender: FDA-Public Use
  Company Number: 2005CG00710

PATIENT
  Age: 93 Year
  Sex: Female

DRUGS (11)
  1. MOPRAL [Suspect]
     Indication: GASTRIC ULCER
     Dosage: 40 MG DAILY PO
     Route: 048
     Dates: start: 20050208, end: 20050214
  2. AMOXICILLIN [Suspect]
     Dosage: 3 G DAILY PO
     Route: 048
     Dates: start: 20050208, end: 20050214
  3. OLMETEC [Suspect]
     Dosage: 20 MG DAILY PO
     Route: 048
     Dates: end: 20050214
  4. DAFALGAN [Concomitant]
  5. LEVOTHYROX [Concomitant]
  6. TARDYFERON /GFR/ [Concomitant]
  7. DI-ANTALVIC [Concomitant]
  8. XANAX [Concomitant]
  9. MOVICOL [Concomitant]
  10. OFLOCET [Concomitant]
  11. ZECLAR [Concomitant]

REACTIONS (17)
  - CULTURE URINE POSITIVE [None]
  - EMOTIONAL DISORDER [None]
  - FALL [None]
  - FEMUR FRACTURE [None]
  - GASTRIC ULCER [None]
  - GASTROINTESTINAL DISORDER [None]
  - GASTROINTESTINAL MOTILITY DISORDER [None]
  - HAEMATURIA [None]
  - LEUKOCYTOSIS [None]
  - LEUKOCYTURIA [None]
  - NEUTROPHIL COUNT INCREASED [None]
  - NITRITURIA [None]
  - NORMOCHROMIC NORMOCYTIC ANAEMIA [None]
  - PAIN [None]
  - RENAL FAILURE [None]
  - SYSTEMIC INFLAMMATORY RESPONSE SYNDROME [None]
  - TUBULOINTERSTITIAL NEPHRITIS [None]
